FAERS Safety Report 8095756-3 (Version None)
Quarter: 2012Q1

REPORT INFORMATION
  Report Type: 
  Country: None (occurrence: None)
  Receive Date: 20120129
  Receipt Date: 20111223
  Transmission Date: 20120608
  Serious: No
  Sender: FDA-Public Use
  Company Number: US-ABBOTT-11P-163-0886889-00

PATIENT
  Sex: Female

DRUGS (10)
  1. HUMIRA [Suspect]
     Indication: RHEUMATOID ARTHRITIS
     Route: 058
  2. MULTI-VITAMIN [Concomitant]
     Indication: PRODUCT USED FOR UNKNOWN INDICATION
  3. CALCIUM WITH VITAMIN D [Concomitant]
     Indication: PRODUCT USED FOR UNKNOWN INDICATION
  4. ZINC SULFATE [Concomitant]
     Indication: PRODUCT USED FOR UNKNOWN INDICATION
  5. ANTIVERT [Concomitant]
     Indication: VERTIGO
  6. ASCORBIC ACID [Concomitant]
     Indication: PRODUCT USED FOR UNKNOWN INDICATION
  7. ANTIVERT [Concomitant]
     Indication: MOTION SICKNESS
     Dosage: 1/2 TABLET, 1 IN 1 D
  8. SALSALATE [Concomitant]
     Indication: PRODUCT USED FOR UNKNOWN INDICATION
  9. ASPIRIN [Concomitant]
     Indication: PRODUCT USED FOR UNKNOWN INDICATION
  10. POTASSIUM [Concomitant]
     Indication: PRODUCT USED FOR UNKNOWN INDICATION

REACTIONS (10)
  - THROAT IRRITATION [None]
  - PHARYNGEAL ERYTHEMA [None]
  - HEPATIC ENZYME INCREASED [None]
  - COUGH [None]
  - BRONCHITIS [None]
  - DRUG INEFFECTIVE [None]
  - RHINORRHOEA [None]
  - HEPATIC STEATOSIS [None]
  - PYREXIA [None]
  - CHILLS [None]
